FAERS Safety Report 17415294 (Version 1)
Quarter: 2020Q1

REPORT INFORMATION
  Report Type: Spontaneous
  Country: US (occurrence: US)
  Receive Date: 20200213
  Receipt Date: 20200213
  Transmission Date: 20200409
  Serious: Yes (Other)
  Sender: FDA-Public Use
  Company Number: US-PFIZER INC-2020064244

PATIENT
  Age: 10 Year
  Sex: Male
  Weight: 56.7 kg

DRUGS (1)
  1. ETHOSUXIMIDE. [Suspect]
     Active Substance: ETHOSUXIMIDE
     Indication: SEIZURE
     Dosage: 7.5 ML, 2X/DAY(250MG/5ML)
     Route: 048
     Dates: start: 201902

REACTIONS (4)
  - Product deposit [Not Recovered/Not Resolved]
  - Throat irritation [Not Recovered/Not Resolved]
  - Product odour abnormal [Not Recovered/Not Resolved]
  - Poor quality product administered [Not Recovered/Not Resolved]

NARRATIVE: CASE EVENT DATE: 201902
